FAERS Safety Report 11355051 (Version 1)
Quarter: 2015Q3

REPORT INFORMATION
  Report Type: Spontaneous
  Country: US (occurrence: US)
  Receive Date: 20150807
  Receipt Date: 20150807
  Transmission Date: 20151125
  Serious: No
  Sender: FDA-Public Use
  Company Number: US-JNJFOC-20150710876

PATIENT
  Age: 37 Year
  Sex: Female
  Weight: 108.86 kg

DRUGS (4)
  1. ZYRTEC [Suspect]
     Active Substance: CETIRIZINE HYDROCHLORIDE
     Indication: FOOD ALLERGY
     Dosage: TAKING FROM 8 OR MORE YEARS.
     Route: 065
  2. ZYRTEC [Suspect]
     Active Substance: CETIRIZINE HYDROCHLORIDE
     Indication: HOUSE DUST ALLERGY
     Dosage: TAKING FROM 8 OR MORE YEARS.
     Route: 065
  3. CETIRIZINE HYDROCHLORIDE. [Concomitant]
     Active Substance: CETIRIZINE HYDROCHLORIDE
     Indication: PRODUCT USED FOR UNKNOWN INDICATION
     Dosage: WAS TAKING FROM 8 OR MORE YEARS.
     Route: 065
  4. ZYRTEC [Suspect]
     Active Substance: CETIRIZINE HYDROCHLORIDE
     Indication: ALLERGY TO ARTHROPOD BITE
     Dosage: TAKING FROM 8 OR MORE YEARS.
     Route: 065

REACTIONS (3)
  - Pruritus generalised [Unknown]
  - Product label issue [Unknown]
  - Incorrect drug administration duration [Unknown]
